FAERS Safety Report 5799370-1 (Version None)
Quarter: 2008Q3

REPORT INFORMATION
  Report Type: 
  Country: None (occurrence: None)
  Receive Date: 20080703
  Receipt Date: 20080620
  Transmission Date: 20090109
  Serious: Yes (Other)
  Sender: FDA-Public Use
  Company Number: JP-PFIZER INC-2008053661

PATIENT
  Age: 65 Year
  Sex: Female

DRUGS (1)
  1. GABAPENTIN [Suspect]
     Route: 048

REACTIONS (2)
  - CREATININE RENAL CLEARANCE DECREASED [None]
  - SOMNOLENCE [None]
